FAERS Safety Report 13389844 (Version 2)
Quarter: 2017Q2

REPORT INFORMATION
  Report Type: Report from Study
  Country: None (occurrence: US)
  Receive Date: 20170331
  Receipt Date: 20170420
  Transmission Date: 20170830
  Serious: Yes (Hospitalization)
  Sender: FDA-Public Use
  Company Number: US-ABBVIE-17K-163-1869370-00

PATIENT
  Age: 57 Year
  Sex: Female
  Weight: 95.34 kg

DRUGS (1)
  1. HUMIRA [Suspect]
     Active Substance: ADALIMUMAB
     Indication: ANKYLOSING SPONDYLITIS
     Route: 058
     Dates: start: 201507

REACTIONS (4)
  - Hypoaesthesia [Recovering/Resolving]
  - Post procedural complication [Recovering/Resolving]
  - Intervertebral disc protrusion [Recovering/Resolving]
  - Gait disturbance [Recovering/Resolving]

NARRATIVE: CASE EVENT DATE: 201611
